FAERS Safety Report 6030642-1 (Version None)
Quarter: 2009Q1

REPORT INFORMATION
  Report Type: 
  Country: None (occurrence: None)
  Receive Date: 20090106
  Receipt Date: 20090106
  Transmission Date: 20090719
  Serious: Yes (Other)
  Sender: FDA-Public Use
  Company Number: None

PATIENT
  Sex: Female
  Weight: 91 kg

DRUGS (2)
  1. CLOFARABINE 20MG/ML GENZYME [Suspect]
     Indication: ACUTE MYELOID LEUKAEMIA RECURRENT
     Dosage: 30 MG/M2 D1-5 IV DRIP
     Route: 041
     Dates: start: 20081218, end: 20081222
  2. GEMTUZUMAB OZOGAMICIN 5MG [Suspect]
     Indication: ACUTE MYELOID LEUKAEMIA RECURRENT
     Dosage: 3 MG/M2 D1, 4, 7 IV DRIP
     Route: 041
     Dates: start: 20081218, end: 20081224

REACTIONS (2)
  - PORTAL VEIN OCCLUSION [None]
  - VENOOCCLUSIVE LIVER DISEASE [None]
